FAERS Safety Report 11281121 (Version 1)
Quarter: 2015Q3

REPORT INFORMATION
  Report Type: Spontaneous
  Country: FR (occurrence: FR)
  Receive Date: 20150717
  Receipt Date: 20150717
  Transmission Date: 20151125
  Serious: Yes (Death)
  Sender: FDA-Public Use
  Company Number: FR-BAYER-2015-375162

PATIENT
  Age: 77 Year
  Sex: Female

DRUGS (9)
  1. LASILIX [Concomitant]
     Active Substance: FUROSEMIDE
     Dosage: 40 MG
  2. AUGMENTIN [Concomitant]
     Active Substance: AMOXICILLIN\CLAVULANATE POTASSIUM
  3. BISOPROLOL FUMARATE. [Concomitant]
     Active Substance: BISOPROLOL FUMARATE
  4. DIFFU K [Concomitant]
     Active Substance: POTASSIUM CHLORIDE
  5. LANSOPRAZOLE. [Concomitant]
     Active Substance: LANSOPRAZOLE
  6. PARACETAMOL [Concomitant]
     Active Substance: ACETAMINOPHEN
  7. UVEDOSE [Concomitant]
     Active Substance: CHOLECALCIFEROL
  8. ASPIRINE PROTECT 100 MG COMPRIM? GASTRO-R?SISTANT [Suspect]
     Active Substance: ASPIRIN
     Dosage: 100 MG, QD
     Route: 048
     Dates: start: 201503, end: 20150611
  9. COVERSYL [Concomitant]
     Active Substance: PERINDOPRIL
     Dosage: 5 MG

REACTIONS (7)
  - Anaemia [Fatal]
  - Intestinal ulcer [Fatal]
  - Erosive duodenitis [None]
  - Melaena [Fatal]
  - Rectal haemorrhage [Fatal]
  - Blood pressure decreased [None]
  - Oxygen saturation decreased [None]

NARRATIVE: CASE EVENT DATE: 201506
